FAERS Safety Report 7742667-6 (Version None)
Quarter: 2011Q3

REPORT INFORMATION
  Report Type: 
  Country: None (occurrence: None)
  Receive Date: 20110912
  Receipt Date: 20110719
  Transmission Date: 20111222
  Serious: Yes (Death)
  Sender: FDA-Public Use
  Company Number: GB-ASTRAZENECA-2011SE42761

PATIENT
  Age: 55 Year
  Sex: Male

DRUGS (4)
  1. SEROQUEL [Suspect]
     Route: 048
     Dates: start: 20110208
  2. SEROQUEL [Suspect]
     Indication: MANIA
     Route: 048
     Dates: start: 20110207, end: 20110208
  3. CLONAZEPAM [Concomitant]
     Indication: MANIA
     Route: 048
     Dates: start: 20110208
  4. LORAZEPAM [Concomitant]
     Indication: MANIA
     Route: 048
     Dates: start: 20110207

REACTIONS (1)
  - SUDDEN DEATH [None]
